FAERS Safety Report 4689862-0 (Version None)
Quarter: 2005Q2

REPORT INFORMATION
  Report Type: 
  Country: None (occurrence: None)
  Receive Date: 20050614
  Receipt Date: 20050530
  Transmission Date: 20051028
  Serious: Yes (Hospitalization, Disabling)
  Sender: FDA-Public Use
  Company Number: DEWYE702130MAY05

PATIENT
  Sex: Male

DRUGS (6)
  1. ENBREL [Suspect]
     Indication: RHEUMATOID ARTHRITIS
     Route: 058
     Dates: start: 20031001, end: 20050424
  2. DECORTIN-H [Concomitant]
     Route: 048
  3. VALORON N [Concomitant]
     Route: 048
  4. FOSAMAX [Concomitant]
     Route: 048
     Dates: start: 20031101
  5. CALCIUM CARBONATE, COLECALCIFEROL [Concomitant]
     Route: 048
  6. FORMOTEROL [Concomitant]
     Route: 055

REACTIONS (2)
  - DEAFNESS BILATERAL [None]
  - TINNITUS [None]
